APPROVED DRUG PRODUCT: METHIMAZOLE
Active Ingredient: METHIMAZOLE
Strength: 10MG
Dosage Form/Route: TABLET;ORAL
Application: A202068 | Product #002 | TE Code: AB
Applicant: RISING PHARMA HOLDINGS INC
Approved: Mar 7, 2012 | RLD: No | RS: No | Type: RX